FAERS Safety Report 12060923 (Version 2)
Quarter: 2016Q3

REPORT INFORMATION
  Report Type: Report from Study
  Country: JP (occurrence: JP)
  Receive Date: 20160210
  Receipt Date: 20160803
  Transmission Date: 20161109
  Serious: Yes (Death)
  Sender: FDA-Public Use
  Company Number: JP-PFIZER INC-2016071049

PATIENT
  Age: 38 Year
  Sex: Male
  Weight: 65.6 kg

DRUGS (3)
  1. TYGACIL [Suspect]
     Active Substance: TIGECYCLINE
     Indication: ENTEROBACTER INFECTION
     Dosage: 50 MG, 2X/DAY (THE FIRST DOSE AT 10:00 AND THE SECOND DOSE AT 22:00)
     Route: 041
     Dates: start: 20151128, end: 20151203
  2. GRAN [Concomitant]
     Active Substance: FILGRASTIM
     Dosage: UNK
     Dates: start: 20151128
  3. TYGACIL [Suspect]
     Active Substance: TIGECYCLINE
     Indication: SKIN INFECTION
     Dosage: 100 MG, 1X/DAY
     Route: 041
     Dates: start: 20151127

REACTIONS (1)
  - Pneumonia [Fatal]

NARRATIVE: CASE EVENT DATE: 20151205
